FAERS Safety Report 10176484 (Version 2)
Quarter: 2014Q2

REPORT INFORMATION
  Report Type: Spontaneous
  Country: PL (occurrence: PL)
  Receive Date: 20140516
  Receipt Date: 20140516
  Transmission Date: 20141212
  Serious: Yes (Other)
  Sender: FDA-Public Use
  Company Number: PL-BAYER-2014-064140

PATIENT
  Sex: Male
  Weight: 2.84 kg

DRUGS (1)
  1. ACETYLSALICYLIC ACID({=100 MG) [Suspect]
     Route: 064

REACTIONS (3)
  - Foetal hypokinesia [None]
  - Foetal heart rate abnormal [None]
  - Foetal exposure during pregnancy [None]
